FAERS Safety Report 25686135 (Version 1)
Quarter: 2025Q3

REPORT INFORMATION
  Report Type: Spontaneous
  Country: US (occurrence: US)
  Receive Date: 20250815
  Receipt Date: 20250815
  Transmission Date: 20251020
  Serious: No
  Sender: MYLAN
  Company Number: US-MYLANLABS-2025M1067079

PATIENT
  Sex: Female

DRUGS (3)
  1. ZOLOFT [Suspect]
     Active Substance: SERTRALINE HYDROCHLORIDE
     Indication: Product used for unknown indication
  2. AUVELITY [Suspect]
     Active Substance: BUPROPION HYDROCHLORIDE\DEXTROMETHORPHAN HYDROBROMIDE
     Indication: Major depression
     Dosage: 1 DOSAGE FORM, PM (AT NIGHT )
  3. AUVELITY [Suspect]
     Active Substance: BUPROPION HYDROCHLORIDE\DEXTROMETHORPHAN HYDROBROMIDE
     Dosage: 2 DOSAGE FORM, PM (AT NIGHT )

REACTIONS (7)
  - Road traffic accident [Unknown]
  - Disorientation [Unknown]
  - Feeling abnormal [Unknown]
  - Amnesia [Unknown]
  - Mania [Unknown]
  - Somnolence [Unknown]
  - Overdose [Unknown]
